FAERS Safety Report 7865953-8 (Version None)
Quarter: 2011Q4

REPORT INFORMATION
  Report Type: 
  Country: None (occurrence: None)
  Receive Date: 20111028
  Receipt Date: 20110325
  Transmission Date: 20120403
  Serious: No
  Sender: FDA-Public Use
  Company Number: US-GLAXOSMITHKLINE-A0920067A

PATIENT
  Age: 71 Year
  Sex: Male

DRUGS (3)
  1. COMBIVENT [Concomitant]
  2. ADVAIR DISKUS 100/50 [Suspect]
     Indication: CHRONIC OBSTRUCTIVE PULMONARY DISEASE
     Dosage: 1PUFF PER DAY
     Route: 055
     Dates: start: 20100323
  3. ALBUTEROL [Concomitant]

REACTIONS (4)
  - PRURITUS [None]
  - ERYTHEMA [None]
  - SWELLING [None]
  - URTICARIA [None]
